FAERS Safety Report 11521305 (Version 3)
Quarter: 2017Q1

REPORT INFORMATION
  Report Type: Report from Study
  Country: CO (occurrence: CO)
  Receive Date: 20150918
  Receipt Date: 20170119
  Transmission Date: 20170428
  Serious: Yes (Other)
  Sender: FDA-Public Use
  Company Number: PHHY2015CO093854

PATIENT
  Sex: Male
  Weight: 74 kg

DRUGS (1)
  1. GLIVEC [Suspect]
     Active Substance: IMATINIB MESYLATE
     Indication: GASTROINTESTINAL STROMAL TUMOUR
     Dosage: 400 MG, QD
     Route: 048
     Dates: start: 20150211

REACTIONS (8)
  - Concomitant disease progression [Unknown]
  - Facial paralysis [Unknown]
  - Vomiting [Unknown]
  - Fluid retention [Unknown]
  - Deafness [Unknown]
  - Irritability [Unknown]
  - Eye inflammation [Unknown]
  - Dizziness [Unknown]
